FAERS Safety Report 5704804-4 (Version None)
Quarter: 2008Q2

REPORT INFORMATION
  Report Type: 
  Country: None (occurrence: None)
  Receive Date: 20080414
  Receipt Date: 20080402
  Transmission Date: 20081010
  Serious: Yes (Hospitalization)
  Sender: FDA-Public Use
  Company Number: JP-PFIZER INC-2008027712

PATIENT
  Age: 83 Year
  Sex: Male

DRUGS (3)
  1. EPLERENONE [Suspect]
     Indication: HYPERTENSION
     Dosage: DAILY DOSE:50MG
     Route: 048
  2. NORVASC [Concomitant]
     Dosage: DAILY DOSE:2.5MG
     Route: 048
  3. SEROQUEL [Concomitant]
     Route: 048

REACTIONS (1)
  - CONVULSION [None]
